FAERS Safety Report 13077756 (Version 1)
Quarter: 2017Q1

REPORT INFORMATION
  Report Type: Spontaneous
  Country: US (occurrence: US)
  Receive Date: 20170101
  Receipt Date: 20170101
  Transmission Date: 20170428
  Serious: Yes (Hospitalization)
  Sender: FDA-Public Use
  Company Number: US-MALLINCKRODT-T201606729

PATIENT
  Age: 29 Year
  Sex: Male

DRUGS (4)
  1. GABLOFEN [Suspect]
     Active Substance: BACLOFEN
     Indication: MUSCLE SPASTICITY
     Dosage: 1186.4 MCG/DAY
     Route: 037
  2. GABLOFEN [Suspect]
     Active Substance: BACLOFEN
     Indication: BRAIN INJURY
  3. GABLOFEN [Suspect]
     Active Substance: BACLOFEN
     Indication: HEAD INJURY
  4. ATIVAN [Concomitant]
     Active Substance: LORAZEPAM

REACTIONS (5)
  - Guillain-Barre syndrome [Recovered/Resolved]
  - Muscle spasms [Recovered/Resolved]
  - Dyskinesia [Recovered/Resolved]
  - Withdrawal syndrome [Recovered/Resolved]
  - Underdose [Recovered/Resolved]

NARRATIVE: CASE EVENT DATE: 20161206
